FAERS Safety Report 6835276-4 (Version None)
Quarter: 2010Q3

REPORT INFORMATION
  Report Type: 
  Country: None (occurrence: None)
  Receive Date: 20100713
  Receipt Date: 20100705
  Transmission Date: 20110219
  Serious: Yes (Death)
  Sender: FDA-Public Use
  Company Number: JP-BAYER-201011780BYL

PATIENT
  Age: 90 Year
  Sex: Male
  Weight: 64 kg

DRUGS (3)
  1. NEXAVAR [Suspect]
     Indication: HEPATIC NEOPLASM MALIGNANT
     Dosage: TOTAL DAILY DOSE: 400 MG  UNIT DOSE: 200 MG
     Route: 048
     Dates: start: 20100329, end: 20100408
  2. MAGMITT [Concomitant]
     Dosage: UNIT DOSE: 250 MG
     Route: 048
     Dates: start: 20100317, end: 20100408
  3. CRAVIT [Concomitant]
     Indication: CONJUNCTIVITIS
     Route: 031
     Dates: start: 20100403

REACTIONS (1)
  - AORTIC ANEURYSM RUPTURE [None]
